FAERS Safety Report 6791401-5 (Version None)
Quarter: 2010Q2

REPORT INFORMATION
  Report Type: 
  Country: None (occurrence: None)
  Receive Date: 20100624
  Receipt Date: 20100618
  Transmission Date: 20101027
  Serious: Yes (Hospitalization)
  Sender: FDA-Public Use
  Company Number: US-ALLERGAN-1007979US

PATIENT
  Age: 42 Year
  Sex: Female

DRUGS (3)
  1. BOTOX COSMETIC [Suspect]
     Indication: SKIN WRINKLING
     Dosage: UNK
     Route: 030
     Dates: start: 20100101, end: 20100101
  2. BOTOX COSMETIC [Suspect]
     Dosage: 50 UNITS, SINGLE
     Route: 030
     Dates: start: 20100615, end: 20100615
  3. SYNTHROID [Concomitant]
     Indication: PROPHYLAXIS

REACTIONS (14)
  - ANXIETY [None]
  - ASTHENIA [None]
  - BACK PAIN [None]
  - BRONCHITIS [None]
  - CARDIOVASCULAR DISORDER [None]
  - CONSTIPATION [None]
  - DIARRHOEA [None]
  - FATIGUE [None]
  - HEADACHE [None]
  - INFLUENZA LIKE ILLNESS [None]
  - MUSCLE SPASMS [None]
  - PARAESTHESIA [None]
  - RENAL PAIN [None]
  - TREMOR [None]
